FAERS Safety Report 7986621 (Version 16)
Quarter: 2014Q4

REPORT INFORMATION
  Report Type: Spontaneous
  Country: US (occurrence: US)
  Receive Date: 20110610
  Receipt Date: 20141201
  Transmission Date: 20150529
  Serious: Yes (Hospitalization, Disabling, Other)
  Sender: FDA-Public Use
  Company Number: US-009507513-1106USA00663

PATIENT
  Sex: Female
  Weight: 67.13 kg

DRUGS (10)
  1. CALCIUM (UNSPECIFIED) [Concomitant]
     Active Substance: CALCIUM
     Dates: start: 2001
  2. THYROID [Concomitant]
     Active Substance: LEVOTHYROXINE\LIOTHYRONINE
     Dates: start: 1971
  3. FOSAMAX [Suspect]
     Active Substance: ALENDRONATE SODIUM
     Indication: OSTEOPOROSIS
     Dosage: 70 MG, QW
     Route: 048
     Dates: start: 200401, end: 20051219
  4. CHONDROITIN SULFATE (BOVINE)\GLUCOSAMINE SULFATE [Concomitant]
     Active Substance: CHONDROITIN SULFATE (BOVINE)\GLUCOSAMINE SULFATE
     Dates: start: 2001
  5. FOSAMAX PLUS D [Suspect]
     Active Substance: ALENDRONATE SODIUM\CHOLECALCIFEROL
     Dosage: UNK
     Route: 048
     Dates: start: 200904
  6. FOSAMAX PLUS D [Suspect]
     Active Substance: ALENDRONATE SODIUM\CHOLECALCIFEROL
     Indication: OSTEOPENIA
     Dosage: 70 MG / 5600 MG, UNK
     Route: 048
     Dates: start: 200812
  7. FOSAMAX PLUS D [Suspect]
     Active Substance: ALENDRONATE SODIUM\CHOLECALCIFEROL
     Indication: OSTEOPOROSIS
     Dosage: 70 MG / 2800 MG, UNK
     Route: 048
     Dates: start: 20060218, end: 20091217
  8. FOSAMAX [Suspect]
     Active Substance: ALENDRONATE SODIUM
     Indication: OSTEOPENIA
     Dosage: UNK
     Route: 048
     Dates: start: 200309
  9. VITAMIN D [Concomitant]
     Active Substance: CHOLECALCIFEROL
     Dates: start: 2001
  10. SYNTHROID [Concomitant]
     Active Substance: LEVOTHYROXINE SODIUM
     Indication: HYPOTHYROIDISM
     Dates: start: 2001

REACTIONS (38)
  - Hypercholesterolaemia [Not Recovered/Not Resolved]
  - Muscular weakness [Unknown]
  - Haemangioma of bone [Unknown]
  - Spinal disorder [Unknown]
  - Nocturia [Unknown]
  - Osteoporosis [Not Recovered/Not Resolved]
  - Impaired healing [Unknown]
  - Tooth disorder [Unknown]
  - Spinal column stenosis [Unknown]
  - Ear pain [Unknown]
  - Vomiting [Recovering/Resolving]
  - Femur fracture [Recovering/Resolving]
  - Fracture nonunion [Recovered/Resolved]
  - Tooth abscess [Unknown]
  - Tooth fracture [Unknown]
  - Device failure [Unknown]
  - Dyspepsia [Unknown]
  - Hypertension [Not Recovered/Not Resolved]
  - Blood pressure increased [Unknown]
  - Arthritis [Unknown]
  - Gastrooesophageal reflux disease [Unknown]
  - Intervertebral disc degeneration [Unknown]
  - Hyperlipidaemia [Unknown]
  - Hypoaesthesia [Recovered/Resolved]
  - Joint swelling [Unknown]
  - Femur fracture [Not Recovered/Not Resolved]
  - Low turnover osteopathy [Not Recovered/Not Resolved]
  - Facet joint syndrome [Unknown]
  - Jaw disorder [Unknown]
  - Bursitis [Unknown]
  - Gait disturbance [Unknown]
  - Myalgia [Unknown]
  - Device failure [Unknown]
  - Nausea [Recovering/Resolving]
  - Fall [Unknown]
  - Femur fracture [Unknown]
  - Anxiety [Unknown]
  - Presyncope [Recovered/Resolved]

NARRATIVE: CASE EVENT DATE: 2005
